FAERS Safety Report 5162001-8 (Version None)
Quarter: 2006Q4

REPORT INFORMATION
  Report Type: 
  Country: None (occurrence: None)
  Receive Date: 20061121
  Receipt Date: 20061108
  Transmission Date: 20070319
  Serious: Yes (Hospitalization)
  Sender: FDA-Public Use
  Company Number: 2006116225

PATIENT
  Age: 74 Year
  Sex: Female
  Weight: 55 kg

DRUGS (10)
  1. TOLTERODINE TARTRATE [Suspect]
     Indication: NOCTURIA
     Dosage: 4 MG (4 MG, 1 IN 1 D), ORAL
     Route: 048
     Dates: start: 20060823, end: 20060909
  2. TOLTERODINE TARTRATE [Suspect]
     Indication: POLLAKIURIA
     Dosage: 4 MG (4 MG, 1 IN 1 D), ORAL
     Route: 048
     Dates: start: 20060823, end: 20060909
  3. DILTIAZEM HYDROCHLORIDE [Concomitant]
  4. LANSOPRAZOLE [Concomitant]
  5. MAGNESIUM OXIDE (MAGNESIUM OXIDE) [Concomitant]
  6. BROTIZOLAM (BROTIZOLAM) [Concomitant]
  7. MEILAX (ETHYL LOFLAZEPATE) [Concomitant]
  8. DEPAS (ETIZOLAM) [Concomitant]
  9. SHAKUYAKU-KANZO-TO (LIQUORICE, PEONY) [Concomitant]
  10. MOSAPRIDE CITRATE (MOSAPRIDE CITRATE) [Concomitant]

REACTIONS (8)
  - CYSTITIS [None]
  - DYSURIA [None]
  - HYPERTHERMIA [None]
  - NOCTURIA [None]
  - POLLAKIURIA [None]
  - PYELONEPHRITIS [None]
  - TREMOR [None]
  - URINARY RETENTION [None]
